FAERS Safety Report 14873182 (Version 1)
Quarter: 2018Q2

REPORT INFORMATION
  Report Type: Spontaneous
  Country: CO (occurrence: CO)
  Receive Date: 20180510
  Receipt Date: 20180510
  Transmission Date: 20180711
  Serious: Yes (Hospitalization)
  Sender: FDA-Public Use
  Company Number: CO-AMGEN-COLSP2018039861

PATIENT
  Age: 55 Year
  Sex: Male

DRUGS (1)
  1. ENBREL [Suspect]
     Active Substance: ETANERCEPT
     Indication: ANKYLOSING SPONDYLITIS
     Dosage: 50 MG, QWK
     Route: 058

REACTIONS (5)
  - Hypoaesthesia [Unknown]
  - Injection site swelling [Recovered/Resolved]
  - Pain [Recovered/Resolved]
  - Lack of injection site rotation [Unknown]
  - Needle issue [Unknown]

NARRATIVE: CASE EVENT DATE: 201712
